FAERS Safety Report 21749359 (Version 1)
Quarter: 2022Q4

REPORT INFORMATION
  Report Type: Spontaneous
  Country: CN (occurrence: CN)
  Receive Date: 20221219
  Receipt Date: 20221219
  Transmission Date: 20230113
  Serious: Yes (Hospitalization)
  Sender: FDA-Public Use
  Company Number: CN-PFIZER INC-PV202200123686

PATIENT
  Age: 71 Year
  Sex: Male

DRUGS (2)
  1. IRINOTECAN [Suspect]
     Active Substance: IRINOTECAN
     Indication: Neoplasm malignant
     Dosage: 0.12 G, 1X/DAY
     Route: 041
     Dates: start: 20221104, end: 20221104
  2. SERPLULIMAB [Suspect]
     Active Substance: SERPLULIMAB
     Indication: Neoplasm malignant
     Dosage: 350 MG, 1X/DAY
     Route: 041
     Dates: start: 20221104, end: 20221104

REACTIONS (1)
  - Anaemia [Recovering/Resolving]

NARRATIVE: CASE EVENT DATE: 20221116
